FAERS Safety Report 4351238-3 (Version None)
Quarter: 2004Q2

REPORT INFORMATION
  Report Type: 
  Country: None (occurrence: None)
  Receive Date: 20040428
  Receipt Date: 20040408
  Transmission Date: 20050107
  Serious: Yes (Disabling)
  Sender: FDA-Public Use
  Company Number: USA040361555

PATIENT
  Age: 58 Year
  Sex: Male

DRUGS (4)
  1. CIALIS [Suspect]
     Dosage: 20 MG
     Dates: start: 20040212, end: 20040212
  2. GLUCOPHAGE [Concomitant]
  3. SINGULAIR [Concomitant]
  4. PREVACID [Concomitant]

REACTIONS (7)
  - BALANCE DISORDER [None]
  - DEAFNESS UNILATERAL [None]
  - FALL [None]
  - IMPAIRED WORK ABILITY [None]
  - LABYRINTHITIS [None]
  - TINNITUS [None]
  - VERTIGO [None]
